FAERS Safety Report 10249174 (Version 1)
Quarter: 2014Q2

REPORT INFORMATION
  Report Type: Spontaneous
  Country: JP (occurrence: JP)
  Receive Date: 20140620
  Receipt Date: 20140620
  Transmission Date: 20141212
  Serious: Yes (Death)
  Sender: FDA-Public Use
  Company Number: JP-MALLINCKRODT-T201402560

PATIENT
  Age: 71 Year
  Sex: Male
  Weight: 49.9 kg

DRUGS (7)
  1. METHADONE [Suspect]
     Indication: CANCER PAIN
     Dosage: 5 MG (15 DAILY DOSE)
     Route: 048
     Dates: start: 20131211, end: 20140228
  2. OXINORM                            /00045603/ [Concomitant]
     Dosage: 10 MG, PRN
     Route: 048
     Dates: start: 20131210
  3. HYPEN                              /00613801/ [Concomitant]
     Dosage: 400 MG
     Route: 048
  4. CALONAL [Concomitant]
     Dosage: 1800 MG
     Route: 048
  5. WARFARIN [Concomitant]
     Dosage: 1.5 MG
     Route: 048
  6. PREDONINE                          /00016201/ [Concomitant]
     Indication: LUNG NEOPLASM MALIGNANT
     Dosage: 10 MG
     Route: 048
  7. TAKEPRON [Concomitant]
     Dosage: 15 MG
     Route: 048

REACTIONS (1)
  - Prostate cancer [Fatal]
